FAERS Safety Report 10778124 (Version 2)
Quarter: 2015Q2

REPORT INFORMATION
  Report Type: Spontaneous
  Country: US (occurrence: US)
  Receive Date: 20150209
  Receipt Date: 20150617
  Transmission Date: 20150821
  Serious: No
  Sender: FDA-Public Use
  Company Number: US-PFIZER INC-2015045217

PATIENT
  Age: 75 Year
  Sex: Female

DRUGS (3)
  1. INLYTA [Suspect]
     Active Substance: AXITINIB
     Indication: RENAL CANCER
     Dosage: 5 MG, UNK
     Dates: start: 20150121
  2. INLYTA [Suspect]
     Active Substance: AXITINIB
     Dosage: UNK, 2X/DAY (1MG-2MG TWICE DAILY)
     Dates: start: 20150121
  3. INLYTA [Suspect]
     Active Substance: AXITINIB
     Dosage: 5 MG, 2X/DAY (5MG-5MG TWICE DAILY)
     Dates: start: 20150121

REACTIONS (3)
  - Nausea [Recovering/Resolving]
  - Diarrhoea [Unknown]
  - Constipation [Not Recovered/Not Resolved]

NARRATIVE: CASE EVENT DATE: 2015
